FAERS Safety Report 25080568 (Version 3)
Quarter: 2025Q1

REPORT INFORMATION
  Report Type: Report from Study
  Country: CL (occurrence: CL)
  Receive Date: 20250315
  Receipt Date: 20250325
  Transmission Date: 20250409
  Serious: Yes (Life-Threatening, Other)
  Sender: NOVARTIS
  Company Number: CL-002147023-NVSC2025CL043111

PATIENT
  Age: 40 Year
  Sex: Female

DRUGS (1)
  1. COSENTYX [Suspect]
     Active Substance: SECUKINUMAB
     Indication: Psoriatic arthropathy
     Dosage: 300 MG, QMO
     Route: 058
     Dates: start: 20241210

REACTIONS (9)
  - Gastrointestinal disorder [Unknown]
  - Decreased activity [Unknown]
  - Immunosuppression [Unknown]
  - Pain [Unknown]
  - Product storage error [Unknown]
  - Dysstasia [Unknown]
  - Infection susceptibility increased [Unknown]
  - Drug ineffective [Unknown]
  - Malaise [Unknown]
